FAERS Safety Report 16523964 (Version 3)
Quarter: 2019Q3

REPORT INFORMATION
  Report Type: Spontaneous
  Country: US (occurrence: US)
  Receive Date: 20190702
  Receipt Date: 20190906
  Transmission Date: 20191004
  Serious: No
  Sender: FDA-Public Use
  Company Number: US-AMGEN-USASP2019102524

PATIENT
  Age: 76 Year
  Sex: Female
  Weight: 58.96 kg

DRUGS (9)
  1. VITAMIN B12 [Concomitant]
     Active Substance: CYANOCOBALAMIN
     Dosage: 1000 MICROGRAM, 3 TIMES/WK
     Route: 048
  2. ALIGN [Concomitant]
     Active Substance: BIFIDOBACTERIUM LONGUM SUBSP. INFANTIS
     Dosage: 4 MILLIGRAM
     Route: 048
  3. HYDROCHLOROTHIAZIDE. [Concomitant]
     Active Substance: HYDROCHLOROTHIAZIDE
     Indication: VASCULAR INSUFFICIENCY
     Dosage: 25 MILLIGRAM, AS NECESSARY
     Route: 048
  4. SYSTANE (HYPROMELLOSE 2910 (4000 MPA.S)) [Concomitant]
     Active Substance: HYPROMELLOSE 2910 (4000 MPA.S)
     Dosage: UNK
  5. CALCIUM [Concomitant]
     Active Substance: CALCIUM
  6. HYDROCHLOROTHIAZIDE. [Concomitant]
     Active Substance: HYDROCHLOROTHIAZIDE
     Indication: OEDEMA PERIPHERAL
  7. D-MANNOSE [Concomitant]
     Dosage: 500 MILLIGRAM, QD
  8. PROLIA [Suspect]
     Active Substance: DENOSUMAB
     Indication: OSTEOPOROSIS POSTMENOPAUSAL
     Dosage: 60 MILLIGRAM, Q6MO
     Route: 058
     Dates: start: 20190324
  9. VITAMIN D 2000 [Concomitant]
     Active Substance: VITAMIN D NOS
     Dosage: 2000 UNIT, QD
     Route: 048

REACTIONS (11)
  - Oedema peripheral [Recovered/Resolved]
  - Joint effusion [Recovering/Resolving]
  - Skin disorder [Not Recovered/Not Resolved]
  - Fluid retention [Unknown]
  - Gastrooesophageal reflux disease [Recovered/Resolved]
  - Pyrexia [Recovered/Resolved]
  - Arthralgia [Recovered/Resolved]
  - Rash vesicular [Recovered/Resolved]
  - Urinary tract infection [Recovered/Resolved]
  - Joint stiffness [Recovered/Resolved]
  - Urticaria [Unknown]

NARRATIVE: CASE EVENT DATE: 2019
